FAERS Safety Report 5509940-3 (Version None)
Quarter: 2007Q4

REPORT INFORMATION
  Report Type: 
  Country: None (occurrence: None)
  Receive Date: 20071108
  Receipt Date: 20071031
  Transmission Date: 20080405
  Serious: Yes (Hospitalization)
  Sender: FDA-Public Use
  Company Number: FR-AVENTIS-200715127EU

PATIENT
  Age: 62 Year
  Sex: Male

DRUGS (6)
  1. INDAPAMIDE [Suspect]
     Route: 048
     Dates: start: 20070807, end: 20070823
  2. PAROXETINE HCL [Suspect]
     Route: 048
     Dates: start: 20070807, end: 20070823
  3. KARDEGIC                           /00002703/ [Concomitant]
     Dosage: DOSE: UNK
  4. IRBESARTAN [Concomitant]
     Dosage: DOSE: UNK
  5. NOVONORM [Concomitant]
     Dosage: DOSE: UNK
  6. LANTUS [Concomitant]
     Dosage: DOSE: UNK

REACTIONS (4)
  - ALTERED STATE OF CONSCIOUSNESS [None]
  - DEHYDRATION [None]
  - DRUG INTERACTION [None]
  - HYPONATRAEMIA [None]
